FAERS Safety Report 22215826 (Version 1)
Quarter: 2023Q2

REPORT INFORMATION
  Report Type: Spontaneous
  Country: CN (occurrence: CN)
  Receive Date: 20230417
  Receipt Date: 20230417
  Transmission Date: 20230722
  Serious: Yes (Hospitalization, Other)
  Sender: FDA-Public Use
  Company Number: None

PATIENT
  Age: 6 Year
  Sex: Male
  Weight: 17 kg

DRUGS (6)
  1. CYCLOPHOSPHAMIDE [Suspect]
     Active Substance: CYCLOPHOSPHAMIDE
     Indication: Renal cancer
     Dosage: 0.67 G QD, DILUTED WITH 250 ML OF (RATIO 4:1) GLUCOSE SODIUM CHLORIDE
     Route: 041
     Dates: start: 20230311, end: 20230312
  2. DEXTROSE\SODIUM CHLORIDE [Suspect]
     Active Substance: DEXTROSE\SODIUM CHLORIDE
     Indication: Medication dilution
     Dosage: 250 ML (RATIO 4:1) QD, USED TO DILUTE 0.67 G OF CYCLOPHOSPHAMIDE
     Route: 041
     Dates: start: 20230311, end: 20230312
  3. SODIUM CHLORIDE [Suspect]
     Active Substance: SODIUM CHLORIDE
     Indication: Medication dilution
     Dosage: 250 ML QD, USED TO DILUTE 14 MG OF EPIRUBICIN HYDROCHLORIDE
     Route: 041
     Dates: start: 20230311
  4. SODIUM CHLORIDE [Suspect]
     Active Substance: SODIUM CHLORIDE
     Dosage: 50 ML QD, USED TO DILUTE 1.6 MG OF VINDESINE SULFATE
     Route: 041
     Dates: start: 20230311
  5. EPIRUBICIN [Suspect]
     Active Substance: EPIRUBICIN
     Indication: Renal cancer
     Dosage: 14 MG QD, DILUTED WITH 250 ML OF 0.9 % SODIUM CHLORIDE
     Route: 041
     Dates: start: 20230311, end: 20230313
  6. VINDESINE SULFATE [Suspect]
     Active Substance: VINDESINE SULFATE
     Indication: Renal cancer
     Dosage: 1.6 MG, QD, DILTED WITH 50 ML OF 0.9 % SODIUM CHLORIDE
     Route: 041
     Dates: start: 20230311, end: 20230411

REACTIONS (1)
  - Myelosuppression [Recovering/Resolving]

NARRATIVE: CASE EVENT DATE: 20230320
